FAERS Safety Report 5646196-5 (Version None)
Quarter: 2008Q1

REPORT INFORMATION
  Report Type: 
  Country: None (occurrence: None)
  Receive Date: 20080227
  Receipt Date: 20080222
  Transmission Date: 20080703
  Serious: Yes (Death)
  Sender: FDA-Public Use
  Company Number: TH-JNJFOC-20080205188

PATIENT
  Age: 77 Year
  Sex: Male
  Weight: 67 kg

DRUGS (6)
  1. DECITABINE (DECITABINE) LYOPHILIZED POWDER [Suspect]
     Indication: MYELODYSPLASTIC SYNDROME
     Dosage: 25 MG, INTRAVENOUS
     Route: 042
     Dates: start: 20080131, end: 20080202
  2. PREDNISOLONE [Concomitant]
  3. AMLODIPINE [Concomitant]
  4. FOLIC ACID [Concomitant]
  5. ATIVAN [Concomitant]
  6. SENNOKOT (SENNA FRUIT) TABLETS [Concomitant]

REACTIONS (4)
  - CAECITIS [None]
  - CARDIAC ARREST [None]
  - METABOLIC ACIDOSIS [None]
  - SEPSIS [None]
